FAERS Safety Report 18542970 (Version 7)
Quarter: 2021Q2

REPORT INFORMATION
  Report Type: Report from Study
  Country: KR (occurrence: KR)
  Receive Date: 20201125
  Receipt Date: 20210421
  Transmission Date: 20210717
  Serious: Yes (Hospitalization)
  Sender: FDA-Public Use
  Company Number: KR-ROCHE-2716095

PATIENT
  Age: 59 Year
  Sex: Male
  Weight: 50 kg

DRUGS (44)
  1. TARGIN [Concomitant]
     Active Substance: NALOXONE HYDROCHLORIDE\OXYCODONE HYDROCHLORIDE
     Indication: CHEST PAIN
     Route: 048
     Dates: start: 20201005
  2. TRIDOL [Concomitant]
     Active Substance: TRAMADOL HYDROCHLORIDE
     Indication: PROCEDURAL PAIN
     Route: 042
     Dates: start: 20201117
  3. MTIG 7192A [Suspect]
     Active Substance: TIRAGOLUMAB
     Indication: OESOPHAGEAL CARCINOMA
     Dosage: DOSE OF STUDY DRUG FIRST ADMINISTERED 600 MG?ON 11/NOV/2020, HE RECEIVED MOST RECENT DOSE OF TIRAGLO
     Route: 042
     Dates: start: 20201021
  4. FAMOTIDINE. [Concomitant]
     Active Substance: FAMOTIDINE
     Indication: DYSPEPSIA
     Route: 048
     Dates: start: 20201012
  5. SODIUM ALGINATE [Concomitant]
     Active Substance: SODIUM ALGINATE
     Indication: DYSPEPSIA
     Route: 048
     Dates: start: 20201022, end: 20201027
  6. TARASYN [Concomitant]
     Indication: PAIN
     Route: 042
     Dates: start: 20201030, end: 20201031
  7. JURNISTA [Concomitant]
     Active Substance: HYDROMORPHONE HYDROCHLORIDE
     Indication: ABDOMINAL PAIN
     Route: 048
     Dates: start: 20201031
  8. JURNISTA [Concomitant]
     Active Substance: HYDROMORPHONE HYDROCHLORIDE
     Route: 048
     Dates: start: 20201031
  9. PROPOFOL. [Concomitant]
     Active Substance: PROPOFOL
     Route: 042
     Dates: start: 20201117, end: 20201117
  10. PENIRAMIN [Concomitant]
     Route: 030
     Dates: start: 20201117
  11. CITOPCIN [Concomitant]
     Indication: ANAL FISTULA
     Route: 048
     Dates: start: 20201111, end: 20201115
  12. GLIMEPIRIDE;METFORMIN HYDROCHLORIDE [Concomitant]
     Indication: DIABETES MELLITUS
     Route: 048
     Dates: start: 20200613
  13. ESROBAN [Concomitant]
     Indication: ANAL FISTULA
     Route: 062
     Dates: start: 20201111, end: 20201115
  14. ATEZOLIZUMAB. [Suspect]
     Active Substance: ATEZOLIZUMAB
     Indication: OESOPHAGEAL CARCINOMA
     Dosage: DOSE OF STUDY DRUG FIRST ADMINISTERED 1200 MG?ON 11/NOV/2020, HE RECEIVED MOST RECENT DOSE OF ATEZOL
     Route: 041
     Dates: start: 20201021
  15. FENOFIBRATE. [Concomitant]
     Active Substance: FENOFIBRATE
     Indication: HYPERLIPIDAEMIA
     Route: 048
     Dates: start: 20200713
  16. MUCOSTA [Concomitant]
     Active Substance: REBAMIPIDE
     Indication: DYSPEPSIA
     Route: 048
     Dates: start: 20200828
  17. TARGIN [Concomitant]
     Active Substance: NALOXONE HYDROCHLORIDE\OXYCODONE HYDROCHLORIDE
     Indication: BACK PAIN
  18. IRCODON [Concomitant]
     Active Substance: OXYCODONE HYDROCHLORIDE
     Indication: ABDOMINAL PAIN
     Route: 048
     Dates: start: 20201015
  19. NADOXOL [Concomitant]
     Route: 042
     Dates: start: 20201117
  20. ATEZOLIZUMAB. [Suspect]
     Active Substance: ATEZOLIZUMAB
     Indication: GASTRIC CANCER
  21. LACTULOSE. [Concomitant]
     Active Substance: LACTULOSE
     Indication: CONSTIPATION
     Route: 048
     Dates: start: 20200715
  22. PANTOPRAZOLE [Concomitant]
     Active Substance: PANTOPRAZOLE
     Indication: GASTROOESOPHAGEAL REFLUX DISEASE
     Route: 048
     Dates: start: 20200919
  23. RESOLOR [Concomitant]
     Active Substance: PRUCALOPRIDE SUCCINATE
     Indication: CONSTIPATION
     Route: 048
     Dates: start: 20201031
  24. K DOWN [Concomitant]
     Route: 054
     Dates: start: 20201117, end: 20201117
  25. FENTANYL CITRATE. [Concomitant]
     Active Substance: FENTANYL CITRATE
     Indication: PROCEDURAL PAIN
     Dosage: 800 OTHER
     Route: 042
     Dates: start: 20201117, end: 20201117
  26. WINUF PERI [Concomitant]
     Active Substance: AMINO ACIDS\DEXTROSE\ELECTROLYTES NOS\SOYBEAN OIL\VITAMINS
     Route: 042
     Dates: start: 20201117
  27. STILNOX [Concomitant]
     Active Substance: ZOLPIDEM TARTRATE
     Indication: INSOMNIA
     Route: 048
     Dates: start: 20201111, end: 20201115
  28. FENTANYL. [Concomitant]
     Active Substance: FENTANYL
     Indication: CHEST PAIN
     Dosage: DOSE: 200 (UNIT NOT REPORTED)
     Route: 048
     Dates: start: 20200622, end: 20201020
  29. FENTANYL. [Concomitant]
     Active Substance: FENTANYL
     Indication: BACK PAIN
     Route: 048
     Dates: start: 20201021
  30. FENTANYL. [Concomitant]
     Active Substance: FENTANYL
     Indication: ABDOMINAL PAIN
     Route: 062
     Dates: start: 20201021
  31. DULCOLAX?S [Concomitant]
     Indication: CONSTIPATION
     Route: 048
     Dates: start: 20200525
  32. MTIG 7192A [Suspect]
     Active Substance: TIRAGOLUMAB
     Indication: GASTRIC CANCER
  33. CISPLATIN. [Suspect]
     Active Substance: CISPLATIN
     Indication: OESOPHAGEAL CARCINOMA
     Dosage: DOSE OF STUDY DRUG FIRST ADMINISTERED 130 MG?ON 14/SEP/2020, HE RECEIVED MOST RECENT DOSE OF CISPLAT
     Route: 042
     Dates: start: 20200713
  34. MAGNESIUM OXIDE. [Concomitant]
     Active Substance: MAGNESIUM OXIDE
     Indication: CONSTIPATION
     Route: 048
     Dates: start: 20200720
  35. MACROGOL 4000 [Concomitant]
     Active Substance: POLYETHYLENE GLYCOL 4000
     Indication: CONSTIPATION
     Route: 048
     Dates: start: 20200806, end: 20201020
  36. MEGACE F [Concomitant]
     Indication: DECREASED APPETITE
     Route: 048
     Dates: start: 20200728
  37. PHOSTEN [Concomitant]
     Route: 042
     Dates: start: 20201030, end: 20201030
  38. DOCETAXEL. [Concomitant]
     Active Substance: DOCETAXEL
     Indication: NEOPLASM MALIGNANT
     Dates: start: 20201223, end: 20210205
  39. 5?FLUOROURACIL [Suspect]
     Active Substance: FLUOROURACIL
     Indication: OESOPHAGEAL CARCINOMA
     Dosage: DOSE OF STUDY DRUG FIRST ADMINISTERED 6400 MG?ON 19/SEP/2020, HE RECEIVED MOST RECENT DOSE OF 5?FLUO
     Route: 042
     Dates: start: 20200713
  40. GAVISCON PEPPERMINT [Concomitant]
     Indication: DYSPEPSIA
     Route: 048
     Dates: start: 20200825
  41. MORPHINE [Concomitant]
     Active Substance: MORPHINE
     Indication: PAIN
     Route: 042
     Dates: start: 20201030, end: 20201031
  42. TARASYN [Concomitant]
     Route: 042
     Dates: start: 20201117
  43. HUMULIN R [Concomitant]
     Active Substance: INSULIN HUMAN
     Indication: DIABETES MELLITUS
     Route: 042
     Dates: start: 20201117, end: 20201117
  44. DILID [Concomitant]
     Indication: PROCEDURAL PAIN
     Route: 042
     Dates: start: 20201117

REACTIONS (1)
  - Fournier^s gangrene [Recovered/Resolved]

NARRATIVE: CASE EVENT DATE: 20201116
